FAERS Safety Report 9051886 (Version 1)
Quarter: 2013Q1

REPORT INFORMATION
  Report Type: Spontaneous
  Country: US (occurrence: None)
  Receive Date: 20130130
  Receipt Date: 20130130
  Transmission Date: 20140127
  Serious: Yes (Other)
  Sender: FDA-Public Use
  Company Number: None

PATIENT
  Age: 53 Year
  Sex: Male
  Weight: 68.04 kg

DRUGS (1)
  1. CONGESTION RELIEF EXTREME ZICAM [Suspect]
     Indication: NASAL CONGESTION
     Dosage: 1 SPRAY ONCE A DAY NASAL
     Route: 045
     Dates: start: 20130112, end: 20130113

REACTIONS (2)
  - Anosmia [None]
  - Ageusia [None]
